FAERS Safety Report 26165368 (Version 1)
Quarter: 2025Q4

REPORT INFORMATION
  Report Type: Spontaneous
  Country: US (occurrence: None)
  Receive Date: 20251216
  Receipt Date: 20251216
  Transmission Date: 20260118
  Serious: Yes (unspecified)
  Sender: FDA-CTU
  Company Number: None

PATIENT

DRUGS (1)
  1. IRON SUCROSE [Suspect]
     Active Substance: IRON SUCROSE

REACTIONS (8)
  - Infusion related reaction [None]
  - Dyspnoea [None]
  - Paraesthesia [None]
  - Dizziness [None]
  - Nausea [None]
  - Hyperhidrosis [None]
  - Hypotension [None]
  - Hypoaesthesia [None]

NARRATIVE: CASE EVENT DATE: 20251125
